FAERS Safety Report 11391563 (Version 1)
Quarter: 2015Q3

REPORT INFORMATION
  Report Type: Spontaneous
  Country: US (occurrence: US)
  Receive Date: 20150818
  Receipt Date: 20150818
  Transmission Date: 20151125
  Serious: Yes (Other)
  Sender: FDA-Public Use
  Company Number: US-AMGEN-USASP2015083447

PATIENT
  Age: 75 Year
  Sex: Female

DRUGS (1)
  1. ENBREL [Suspect]
     Active Substance: ETANERCEPT
     Indication: POLYMYALGIA RHEUMATICA
     Dosage: ONCE EVERY 2 TO 3 WEEKS
     Route: 065
     Dates: end: 2015

REACTIONS (3)
  - Polymyalgia rheumatica [Unknown]
  - Off label use [Unknown]
  - Rheumatoid factor increased [Unknown]
